FAERS Safety Report 8606671-8 (Version None)
Quarter: 2012Q3

REPORT INFORMATION
  Report Type: 
  Country: None (occurrence: None)
  Receive Date: 20120820
  Receipt Date: 20120813
  Transmission Date: 20120928
  Serious: Yes (Hospitalization)
  Sender: FDA-Public Use
  Company Number: JP-JNJFOC-20120805994

PATIENT

DRUGS (4)
  1. UNKNOWN MEDICATION [Concomitant]
     Route: 065
  2. ANTIINFLAMMATORY NOS [Concomitant]
     Route: 065
  3. ANALGESIC NOS [Concomitant]
     Route: 065
  4. TRAMADOL HCL [Suspect]
     Indication: PAIN
     Dosage: AVERAGE INITIAL DOSAGE 2.62 TABLETS AND AVERAGE FINAL DOSAGE 5.23 TABLETS
     Route: 065

REACTIONS (1)
  - HOSPITALISATION [None]
